FAERS Safety Report 6865235-7 (Version None)
Quarter: 2010Q3

REPORT INFORMATION
  Report Type: 
  Country: None (occurrence: None)
  Receive Date: 20100721
  Receipt Date: 20080415
  Transmission Date: 20110219
  Serious: No
  Sender: FDA-Public Use
  Company Number: US-PFIZER INC-2008035417

PATIENT
  Age: 52 Year
  Sex: Female
  Weight: 54.545 kg

DRUGS (3)
  1. CHANTIX [Suspect]
     Indication: SMOKING CESSATION THERAPY
     Dates: start: 20080214, end: 20080401
  2. XANAX [Concomitant]
     Indication: PANIC ATTACK
  3. PROZAC [Concomitant]
     Indication: PANIC ATTACK

REACTIONS (4)
  - DIZZINESS [None]
  - DRUG WITHDRAWAL SYNDROME [None]
  - EAR DISORDER [None]
  - TINNITUS [None]
